FAERS Safety Report 4734501-3 (Version None)
Quarter: 2005Q3

REPORT INFORMATION
  Report Type: 
  Country: None (occurrence: None)
  Receive Date: 20050802
  Receipt Date: 20050721
  Transmission Date: 20060218
  Serious: Yes (Hospitalization)
  Sender: FDA-Public Use
  Company Number: 198414

PATIENT
  Age: 53 Year
  Sex: Female
  Weight: 68.0396 kg

DRUGS (5)
  1. AVONEX [Suspect]
     Indication: MULTIPLE SCLEROSIS
     Dosage: 30 UG; QW; IM
     Route: 030
     Dates: start: 20020101, end: 20031001
  2. AVONEX [Suspect]
     Indication: MULTIPLE SCLEROSIS
     Dosage: 30 UG; QW; IM
     Route: 030
     Dates: start: 20031001
  3. FOSAMAX [Concomitant]
  4. BACLOFEN [Concomitant]
  5. FOLIC ACID [Concomitant]

REACTIONS (9)
  - ARTHRITIS [None]
  - ASTHENIA [None]
  - FATIGUE [None]
  - GASTRIC PH DECREASED [None]
  - HEADACHE [None]
  - HYPERCHOLESTEROLAEMIA [None]
  - INFLUENZA LIKE ILLNESS [None]
  - INJECTION SITE PAIN [None]
  - OPTIC NEURITIS [None]
